FAERS Safety Report 18975757 (Version 1)
Quarter: 2021Q1

REPORT INFORMATION
  Report Type: Spontaneous
  Country: US (occurrence: US)
  Receive Date: 20210306
  Receipt Date: 20210306
  Transmission Date: 20210420
  Serious: Yes (Other)
  Sender: FDA-Public Use
  Company Number: US-ASTRAZENECA-2021A093372

PATIENT
  Sex: Female
  Weight: 83 kg

DRUGS (65)
  1. IPRATROPIUM [Concomitant]
     Active Substance: IPRATROPIUM
  2. AXID [Concomitant]
     Active Substance: NIZATIDINE
  3. DECADRON [Concomitant]
     Active Substance: DEXAMETHASONE
  4. ROBITUSSIN (GUAIFENESIN) [Concomitant]
     Active Substance: GUAIFENESIN
  5. FLOVENT [Concomitant]
     Active Substance: FLUTICASONE PROPIONATE
  6. SYMBICORT [Concomitant]
     Active Substance: BUDESONIDE\FORMOTEROL FUMARATE DIHYDRATE
  7. ADVIL [Concomitant]
     Active Substance: IBUPROFEN
  8. STEROID [Concomitant]
     Active Substance: UNSPECIFIED INGREDIENT
  9. PEPCID [Concomitant]
     Active Substance: FAMOTIDINE
  10. XOPENEX [Concomitant]
     Active Substance: LEVALBUTEROL HYDROCHLORIDE
  11. TERBUTALINE [Concomitant]
     Active Substance: TERBUTALINE
  12. LOPRESSOR [Concomitant]
     Active Substance: METOPROLOL TARTRATE
  13. ASPIRIN. [Concomitant]
     Active Substance: ASPIRIN
  14. BUPIVACAINE. [Concomitant]
     Active Substance: BUPIVACAINE
  15. PENICILLIN [Concomitant]
     Active Substance: PENICILLIN
  16. ACETAMINOPHEN. [Concomitant]
     Active Substance: ACETAMINOPHEN
  17. ZITHROMAX [Concomitant]
     Active Substance: AZITHROMYCIN DIHYDRATE
  18. PROAIR HFA [Concomitant]
     Active Substance: ALBUTEROL SULFATE
  19. SMZ/TMP [Concomitant]
     Active Substance: SULFAMETHOXAZOLE\TRIMETHOPRIM
  20. SOLU?MEDROL [Concomitant]
     Active Substance: METHYLPREDNISOLONE SODIUM SUCCINATE
  21. BRONCHODILATORS [Concomitant]
     Active Substance: UNSPECIFIED INGREDIENT
  22. SALINE [Concomitant]
     Active Substance: SODIUM CHLORIDE
  23. DETROL [Concomitant]
     Active Substance: TOLTERODINE TARTRATE
  24. TAGAMET [Concomitant]
     Active Substance: CIMETIDINE
  25. MAGNESIUM OXIDE. [Concomitant]
     Active Substance: MAGNESIUM OXIDE
  26. MULTIVITAMINS [Concomitant]
     Active Substance: VITAMINS
  27. ONDANSETRON [Concomitant]
     Active Substance: ONDANSETRON
  28. CORTISONE [Concomitant]
     Active Substance: CORTISONE
  29. ALBUTEROL. [Concomitant]
     Active Substance: ALBUTEROL
  30. PREDNISONE. [Concomitant]
     Active Substance: PREDNISONE
  31. BENZONATATE. [Concomitant]
     Active Substance: BENZONATATE
  32. CIPROFLOXACIN. [Concomitant]
     Active Substance: CIPROFLOXACIN
  33. MARCAINE [Concomitant]
     Active Substance: BUPIVACAINE HYDROCHLORIDE
  34. BENADRYL [Concomitant]
     Active Substance: DIPHENHYDRAMINE HYDROCHLORIDE
  35. DUONEB [Concomitant]
     Active Substance: ALBUTEROL SULFATE\IPRATROPIUM BROMIDE
  36. ZOLOFT [Concomitant]
     Active Substance: SERTRALINE HYDROCHLORIDE
  37. ALCOHOL. [Concomitant]
     Active Substance: ALCOHOL
  38. CEFTRIAXOME [Concomitant]
  39. INVANZ [Concomitant]
     Active Substance: ERTAPENEM SODIUM
  40. VANCOMYCIN [Concomitant]
     Active Substance: VANCOMYCIN
  41. HALDOL [Concomitant]
     Active Substance: HALOPERIDOL
  42. AMITRIPTYLINE [Concomitant]
     Active Substance: AMITRIPTYLINE
  43. METHYLPREDNISOLONE. [Concomitant]
     Active Substance: METHYLPREDNISOLONE
  44. MELOXICAM. [Concomitant]
     Active Substance: MELOXICAM
  45. DIOVAN [Concomitant]
     Active Substance: VALSARTAN
  46. HYDROCHLOROTHIAZIDE. [Concomitant]
     Active Substance: HYDROCHLOROTHIAZIDE
  47. LISINOPRIL. [Concomitant]
     Active Substance: LISINOPRIL
  48. NAPROXEN. [Concomitant]
     Active Substance: NAPROXEN
  49. IODINE. [Concomitant]
     Active Substance: IODINE
  50. DIPHENHYDRAMINE. [Concomitant]
     Active Substance: DIPHENHYDRAMINE
  51. EPINEPHRINE. [Concomitant]
     Active Substance: EPINEPHRINE
  52. NEXIUM [Suspect]
     Active Substance: ESOMEPRAZOLE MAGNESIUM
     Indication: GASTROOESOPHAGEAL REFLUX DISEASE
     Route: 048
     Dates: end: 2015
  53. OMEPRAZOLE. [Suspect]
     Active Substance: OMEPRAZOLE
     Indication: GASTROOESOPHAGEAL REFLUX DISEASE
     Dosage: GENERIC
     Route: 065
     Dates: start: 20150224
  54. AZMACORT [Concomitant]
     Active Substance: TRIAMCINOLONE ACETONIDE
  55. AVELOX [Concomitant]
     Active Substance: MOXIFLOXACIN HYDROCHLORIDE
  56. TETRACYCLINE [Concomitant]
     Active Substance: TETRACYCLINE
  57. CLINDAMYCIN. [Concomitant]
     Active Substance: CLINDAMYCIN
  58. GEODON [Concomitant]
     Active Substance: ZIPRASIDONE HYDROCHLORIDE\ZIPRASIDONE MESYLATE
  59. MAGNESIUM SULFATE. [Concomitant]
     Active Substance: MAGNESIUM SULFATE
  60. METOPROLOL. [Concomitant]
     Active Substance: METOPROLOL
  61. PROTONIX [Suspect]
     Active Substance: PANTOPRAZOLE SODIUM
     Indication: GASTROOESOPHAGEAL REFLUX DISEASE
     Route: 065
     Dates: end: 2014
  62. LEXAPRO [Concomitant]
     Active Substance: ESCITALOPRAM OXALATE
  63. CODEINE [Concomitant]
     Active Substance: CODEINE
  64. MOTRIC [Concomitant]
  65. METHOCARBAMOL. [Concomitant]
     Active Substance: METHOCARBAMOL

REACTIONS (2)
  - Gastrooesophageal reflux disease [Not Recovered/Not Resolved]
  - Chronic kidney disease [Not Recovered/Not Resolved]
